FAERS Safety Report 7940316-5 (Version None)
Quarter: 2011Q4

REPORT INFORMATION
  Report Type: 
  Country: None (occurrence: None)
  Receive Date: 20111126
  Receipt Date: 20110926
  Transmission Date: 20120403
  Serious: No
  Sender: FDA-Public Use
  Company Number: US-BAYER-2011-093507

PATIENT
  Age: 63 Year
  Sex: Male
  Weight: 136 kg

DRUGS (19)
  1. XANAX [Concomitant]
  2. PLAVIX [Concomitant]
  3. LIPITOR [Concomitant]
  4. ALEVE (CAPLET) [Suspect]
     Dosage: 1 DF, ONCE
     Dates: start: 20110926
  5. LASIX [Concomitant]
  6. ALEVE (CAPLET) [Suspect]
     Dosage: 1 DF, ONCE
     Dates: start: 20110926
  7. ALTACE [Concomitant]
  8. ATENOLOL [Concomitant]
  9. WELLBUTRIN [Concomitant]
  10. KLOR-CON [Concomitant]
  11. LANTUS [Concomitant]
  12. ASPIRIN [Concomitant]
  13. CARDURA [Concomitant]
  14. LEVOFLOXACIN [Concomitant]
  15. ZOLOFT [Concomitant]
  16. ALEVE (CAPLET) [Suspect]
     Indication: PYREXIA
     Dosage: 2 DF, ONCE
     Route: 048
     Dates: start: 20110925
  17. LOPID [Concomitant]
  18. AMBIEN [Concomitant]
  19. NOVOLOG [Concomitant]

REACTIONS (1)
  - PYREXIA [None]
